FAERS Safety Report 12294389 (Version 4)
Quarter: 2016Q2

REPORT INFORMATION
  Report Type: Spontaneous
  Country: IT (occurrence: IT)
  Receive Date: 20160422
  Receipt Date: 20160430
  Transmission Date: 20160815
  Serious: Yes (Other)
  Sender: FDA-Public Use
  Company Number: IT-ACCORD-039789

PATIENT
  Age: 73 Year
  Sex: Female
  Weight: 66 kg

DRUGS (4)
  1. TRIATEC SANOFI [Concomitant]
  2. PACLITAXEL ACCORD [Suspect]
     Active Substance: PACLITAXEL
     Indication: BREAST CANCER
     Route: 042
     Dates: start: 20160126, end: 20160323
  3. ELIQUIS [Concomitant]
     Active Substance: APIXABAN
     Dosage: STRENGTH: 5 MG
  4. ISOPTIN BGP PRODUCTS [Concomitant]
     Dosage: STRENGTH: 120 MG

REACTIONS (6)
  - Dry skin [Recovering/Resolving]
  - Anaemia [Recovering/Resolving]
  - Back pain [Recovering/Resolving]
  - Skin maceration [Recovering/Resolving]
  - Paraesthesia [Not Recovered/Not Resolved]
  - Rash erythematous [Recovering/Resolving]

NARRATIVE: CASE EVENT DATE: 20160202
